FAERS Safety Report 7473053-4 (Version None)
Quarter: 2011Q2

REPORT INFORMATION
  Report Type: 
  Country: None (occurrence: None)
  Receive Date: 20110511
  Receipt Date: 20110502
  Transmission Date: 20111010
  Serious: Yes (Other)
  Sender: FDA-Public Use
  Company Number: CA-ELI_LILLY_AND_COMPANY-CA201105000107

PATIENT
  Sex: Female

DRUGS (6)
  1. ZYPREXA ZYDIS [Suspect]
     Indication: SCHIZOPHRENIA
     Dosage: 5 MG, QD
  2. FLUVOXAMINE [Concomitant]
     Dosage: UNK
  3. PROCYCLIDINE HYDROCHLORIDE 2MG TAB [Concomitant]
  4. ZYPREXA [Suspect]
     Indication: SCHIZOPHRENIA
     Dosage: 5 MG, QD
  5. HALOPERIDOL [Concomitant]
  6. ZYPREXA [Suspect]
     Dosage: 7.5 MG, QD

REACTIONS (4)
  - DIABETES MELLITUS [None]
  - HYPERCHOLESTEROLAEMIA [None]
  - DRUG INEFFECTIVE [None]
  - MYOCARDIAL INFARCTION [None]
